FAERS Safety Report 6374420-2 (Version None)
Quarter: 2009Q3

REPORT INFORMATION
  Report Type: 
  Country: None (occurrence: None)
  Receive Date: 20090921
  Receipt Date: 20090915
  Transmission Date: 20100115
  Serious: Yes (Hospitalization)
  Sender: FDA-Public Use
  Company Number: CHPA2009US18683

PATIENT
  Age: 79 Year
  Sex: Female

DRUGS (1)
  1. ASCRIPTIN BUFFERED CAPS UNKNOWN FORMULA (NCH)(ACETYLSALICYLIC ACID) UN [Suspect]
     Indication: ARTHRITIS
     Dosage: 1 DF, QD, ORAL
     Route: 048
     Dates: start: 20090501

REACTIONS (4)
  - DYSPHONIA [None]
  - DYSPNOEA [None]
  - INTENTIONAL DRUG MISUSE [None]
  - PULMONARY OEDEMA [None]
